FAERS Safety Report 6771292-9 (Version None)
Quarter: 2010Q2

REPORT INFORMATION
  Report Type: 
  Country: None (occurrence: None)
  Receive Date: 20100616
  Receipt Date: 20100602
  Transmission Date: 20101027
  Serious: Yes (Hospitalization)
  Sender: FDA-Public Use
  Company Number: DE-RANBAXY-2010RR-34586

PATIENT
  Age: 84 Year
  Sex: Female
  Weight: 58 kg

DRUGS (9)
  1. VERAPAMIL [Suspect]
     Indication: ANGINA PECTORIS
     Dosage: 80 MG, TID
     Route: 048
     Dates: start: 20100401, end: 20100519
  2. DIGITOXIN TAB [Suspect]
     Indication: DRUG ADMINISTRATION ERROR
     Dosage: 0.07 MG, QD
     Route: 048
     Dates: end: 20100519
  3. ASPIRIN [Concomitant]
     Indication: CARDIOVASCULAR EVENT PROPHYLAXIS
     Dosage: 100 MG, QD
     Route: 048
     Dates: start: 19920101
  4. TOREM 10 [Concomitant]
     Indication: HYPERTENSION
     Dosage: 10 MG, QD
     Route: 048
     Dates: start: 20050101
  5. XIPAMIDE [Concomitant]
     Indication: HYPERTENSION
     Dosage: 20 MG, QD
     Route: 048
     Dates: start: 20050101
  6. GABAPENTIN [Concomitant]
     Indication: NEUROPATHY PERIPHERAL
     Dosage: 100 MG, QD
     Route: 048
     Dates: start: 20060101
  7. MOLSIHEXAL 2MG [Concomitant]
     Indication: ANGINA PECTORIS
     Dosage: 2 MG, QD
     Route: 048
     Dates: start: 20040101
  8. ACTRAPID [Concomitant]
     Indication: TYPE 2 DIABETES MELLITUS
     Dosage: UNK
     Route: 058
     Dates: start: 20080101
  9. LANTUS [Concomitant]
     Indication: TYPE 2 DIABETES MELLITUS
     Dosage: UNK
     Route: 058
     Dates: start: 20080101

REACTIONS (1)
  - BRADYARRHYTHMIA [None]
